FAERS Safety Report 20145548 (Version 1)
Quarter: 2021Q4

REPORT INFORMATION
  Report Type: Report from Study
  Country: BR (occurrence: BR)
  Receive Date: 20211203
  Receipt Date: 20211203
  Transmission Date: 20220303
  Serious: Yes (Other)
  Sender: FDA-Public Use
  Company Number: BR-JNJFOC-20211162957

PATIENT
  Age: 5 Decade
  Sex: Female
  Weight: 78 kg

DRUGS (1)
  1. INFLIXIMAB [Suspect]
     Active Substance: INFLIXIMAB
     Indication: Rheumatoid arthritis
     Route: 042
     Dates: end: 2020

REACTIONS (6)
  - COVID-19 [Unknown]
  - Pneumonia [Unknown]
  - Kidney infection [Unknown]
  - Oropharyngeal pain [Unknown]
  - Coagulopathy [Unknown]
  - Loss of personal independence in daily activities [Unknown]

NARRATIVE: CASE EVENT DATE: 20200101
